FAERS Safety Report 6602660-3 (Version None)
Quarter: 2010Q1

REPORT INFORMATION
  Report Type: 
  Country: None (occurrence: None)
  Receive Date: 20100218
  Receipt Date: 20100209
  Transmission Date: 20100710
  Serious: Yes (Other)
  Sender: FDA-Public Use
  Company Number: A0843683A

PATIENT
  Age: 58 Year
  Sex: Female

DRUGS (1)
  1. ASPIRIN+CAFFEINE+SALICYLAMIDE (FORMULATION UNKNOWN) (ASPIRIN+CAFFEINE+ [Suspect]
     Indication: DRUG USE FOR UNKNOWN INDICATION

REACTIONS (2)
  - DRUG DEPENDENCE [None]
  - OVERDOSE [None]
